FAERS Safety Report 18479511 (Version 1)
Quarter: 2020Q4

REPORT INFORMATION
  Report Type: Spontaneous
  Country: US (occurrence: US)
  Receive Date: 20201106
  Receipt Date: 20201106
  Transmission Date: 20210114
  Serious: Yes (Hospitalization)
  Sender: FDA-Public Use
  Company Number: None

PATIENT
  Age: 47 Year
  Sex: Female

DRUGS (2)
  1. GLATIRAMER [Suspect]
     Active Substance: GLATIRAMER
     Indication: MULTIPLE SCLEROSIS
     Dosage: ?          OTHER FREQUENCY:3 TIMES/WEEK;?
     Route: 058
     Dates: start: 20201106
  2. TOPAMAX [Concomitant]
     Active Substance: TOPIRAMATE
     Dates: start: 20171027

REACTIONS (2)
  - Product dose omission issue [None]
  - Hypotension [None]

NARRATIVE: CASE EVENT DATE: 20201106
